FAERS Safety Report 22165020 (Version 4)
Quarter: 2023Q2

REPORT INFORMATION
  Report Type: Report from Study
  Country: MX (occurrence: MX)
  Receive Date: 20230403
  Receipt Date: 20230601
  Transmission Date: 20230721
  Serious: Yes (Other)
  Sender: FDA-Public Use
  Company Number: MX-002147023-NVSC2023MX074451

PATIENT
  Sex: Female
  Weight: 13.5 kg

DRUGS (1)
  1. OMNITROPE [Suspect]
     Active Substance: SOMATROPIN
     Indication: Product used for unknown indication
     Dosage: 0.7 MG, QD, STRENGTH 10, SUREPAL 10
     Route: 058
     Dates: start: 20230324

REACTIONS (4)
  - Choking [Unknown]
  - Illness [Unknown]
  - Productive cough [Not Recovered/Not Resolved]
  - Device mechanical issue [Unknown]
